FAERS Safety Report 7217528-1 (Version None)
Quarter: 2011Q1

REPORT INFORMATION
  Report Type: 
  Country: None (occurrence: None)
  Receive Date: 20110110
  Receipt Date: 20110103
  Transmission Date: 20110831
  Serious: Yes (Hospitalization)
  Sender: FDA-Public Use
  Company Number: BR-MEDIMMUNE-MEDI-0012137

PATIENT
  Sex: Male
  Weight: 5.85 kg

DRUGS (4)
  1. CAPTOPRIL [Concomitant]
     Indication: BLOOD PRESSURE MANAGEMENT
     Route: 048
  2. SYNAGIS [Suspect]
     Indication: CARDIOMYOPATHY
     Route: 030
     Dates: start: 20100429, end: 20100817
  3. SYNAGIS [Suspect]
  4. FUROSEMIDE [Concomitant]
     Route: 048

REACTIONS (2)
  - PULMONARY ARTERIAL PRESSURE INCREASED [None]
  - PLEURAL EFFUSION [None]
